FAERS Safety Report 20232621 (Version 1)
Quarter: 2021Q4

REPORT INFORMATION
  Report Type: Spontaneous
  Country: US (occurrence: None)
  Receive Date: 20211223
  Receipt Date: 20211223
  Transmission Date: 20220303
  Serious: No
  Sender: FDA-Public Use
  Company Number: None

PATIENT
  Age: 67 Year
  Sex: Female

DRUGS (25)
  1. CYCLOSPORINE [Suspect]
     Active Substance: CYCLOSPORINE
     Indication: Transplant
     Dosage: OTHER QUANTITY : 0.8 ML;?FREQUENCY : TWICE A DAY;?
     Route: 048
     Dates: start: 20211129, end: 20211206
  2. CYCLOSPORINE [Suspect]
     Active Substance: CYCLOSPORINE
     Indication: Immunosuppression
  3. MYCOPHENOLIC ACID [Suspect]
     Active Substance: MYCOPHENOLIC ACID
     Indication: Transplant
     Dosage: OTHER QUANTITY : 1.25 ML;?FREQUENCY : TWICE A DAY;?
     Route: 048
     Dates: start: 20211129, end: 20211206
  4. MYCOPHENOLIC ACID [Suspect]
     Active Substance: MYCOPHENOLIC ACID
     Indication: Immunosuppression
  5. BD PEN NEEDLES [Concomitant]
  6. DOCUSATE CAPSULES [Concomitant]
  7. FOLIC ACID [Concomitant]
     Active Substance: FOLIC ACID
  8. HEPARIN TABLETS [Concomitant]
  9. HUMALOG KWIKPEN [Concomitant]
     Active Substance: INSULIN LISPRO
  10. HUMULIN-N KWIKPEN [Concomitant]
  11. K-PHOS NEUTRAL TABLETS [Concomitant]
  12. LEVOTHYROXINE [Concomitant]
     Active Substance: LEVOTHYROXINE
  13. MIRTAZAPINE [Concomitant]
     Active Substance: MIRTAZAPINE
  14. NYSTATIN [Concomitant]
     Active Substance: NYSTATIN
  15. OMEPRAZOLE [Concomitant]
     Active Substance: OMEPRAZOLE
  16. POSACONAZOLE TABLETS [Concomitant]
  17. RENAVITE RX TABLETS [Concomitant]
  18. SULFAMETHOXAZOLE\TRIMETHOPRIM [Concomitant]
     Active Substance: SULFAMETHOXAZOLE\TRIMETHOPRIM
  19. URSODIOL CAPSULES [Concomitant]
     Active Substance: URSODIOL
  20. VALGANCICLOVIR SUSPENSION [Concomitant]
  21. VANCOMYCIN CAPSULES [Concomitant]
  22. VITAMIN B-1 TABLETS [Concomitant]
  23. THIAMINE HYDROCHLORIDE [Concomitant]
     Active Substance: THIAMINE HYDROCHLORIDE
  24. WARFARIN TABLETS [Concomitant]
  25. PYRIDOXINE [Concomitant]
     Active Substance: PYRIDOXINE

REACTIONS (1)
  - Death [None]

NARRATIVE: CASE EVENT DATE: 20211206
